FAERS Safety Report 17361460 (Version 1)
Quarter: 2020Q1

REPORT INFORMATION
  Report Type: Spontaneous
  Country: US (occurrence: US)
  Receive Date: 20200203
  Receipt Date: 20200203
  Transmission Date: 20200409
  Serious: No
  Sender: FDA-Public Use
  Company Number: US-PFIZER INC-2020042093

PATIENT

DRUGS (1)
  1. MAGNESIUM SULFATE. [Suspect]
     Active Substance: MAGNESIUM SULFATE
     Dosage: UNK (4G/100ML BAG FOR IV INFUSION)
     Route: 041

REACTIONS (4)
  - Flushing [Unknown]
  - Nausea [Unknown]
  - Chills [Unknown]
  - Hyperhidrosis [Unknown]
